FAERS Safety Report 26216404 (Version 1)
Quarter: 2025Q4

REPORT INFORMATION
  Report Type: Spontaneous
  Country: EU (occurrence: EU)
  Receive Date: 20251231
  Receipt Date: 20251231
  Transmission Date: 20260117
  Serious: Yes (Hospitalization, Other)
  Sender: AUROBINDO
  Company Number: EU-MINISAL02-1072697

PATIENT
  Age: 67 Year
  Sex: Male

DRUGS (4)
  1. IRINOTECAN [Suspect]
     Active Substance: IRINOTECAN
     Indication: Oesophageal squamous cell carcinoma metastatic
     Dosage: 259 MILLIGRAM
  2. FLUOROURACIL [Suspect]
     Active Substance: FLUOROURACIL
     Indication: Oesophageal squamous cell carcinoma metastatic
     Dosage: UNK
     Route: 065
  3. DEXAMETHASONE SODIUM PHOSPHATE [Concomitant]
     Active Substance: DEXAMETHASONE SODIUM PHOSPHATE
     Indication: Oesophageal squamous cell carcinoma metastatic
     Dosage: 4 MILLIGRAM
     Route: 061
  4. PACLITAXEL [Concomitant]
     Active Substance: PACLITAXEL
     Indication: Oesophageal squamous cell carcinoma metastatic
     Dosage: UNK

REACTIONS (3)
  - Neutropenia [Recovered/Resolved]
  - Faecaloma [Recovered/Resolved]
  - Overflow diarrhoea [Recovered/Resolved]

NARRATIVE: CASE EVENT DATE: 20251124
